FAERS Safety Report 8724545 (Version 2)
Quarter: 2013Q2

REPORT INFORMATION
  Report Type: Spontaneous
  Country: GB (occurrence: None)
  Receive Date: 20120727
  Receipt Date: 20130603
  Transmission Date: 20140414
  Serious: Yes (Other)
  Sender: FDA-Public Use
  Company Number: AUR-APL-2012-03193

PATIENT
  Age: 65 Year
  Sex: Female

DRUGS (3)
  1. RISPERIDONE [Suspect]
     Indication: DEPRESSION
     Dosage: 2 MG (1 MG,2 IN 1 D)
  2. ALBUTEROL SULFATE [Concomitant]
  3. TIOTROPIUM (TIOTROPIUM) [Concomitant]

REACTIONS (3)
  - CYSTOID MACULAR OEDEMA [None]
  - Idiosyncratic drug reaction [None]
  - Treatment noncompliance [None]
